FAERS Safety Report 14023789 (Version 1)
Quarter: 2017Q3

REPORT INFORMATION
  Report Type: Spontaneous
  Country: US (occurrence: US)
  Receive Date: 20170928
  Receipt Date: 20170928
  Transmission Date: 20171128
  Serious: Yes (Other)
  Sender: FDA-Public Use
  Company Number: US-SA-2017SA033747

PATIENT
  Age: 59 Year
  Sex: Male

DRUGS (5)
  1. BACLOFEN. [Concomitant]
     Active Substance: BACLOFEN
  2. AUBAGIO [Suspect]
     Active Substance: TERIFLUNOMIDE
     Indication: MULTIPLE SCLEROSIS
     Route: 065
  3. NORCO [Concomitant]
     Active Substance: ACETAMINOPHEN\HYDROCODONE BITARTRATE
  4. DITROPAN [Concomitant]
     Active Substance: OXYBUTYNIN CHLORIDE
  5. XANAX [Concomitant]
     Active Substance: ALPRAZOLAM

REACTIONS (1)
  - Hypertension [Unknown]

NARRATIVE: CASE EVENT DATE: 20170221
